FAERS Safety Report 7688682-2 (Version None)
Quarter: 2011Q3

REPORT INFORMATION
  Report Type: 
  Country: None (occurrence: None)
  Receive Date: 20110817
  Receipt Date: 20110802
  Transmission Date: 20111222
  Serious: Yes (Death, Hospitalization)
  Sender: FDA-Public Use
  Company Number: US-GLAXOSMITHKLINE-A0940137A

PATIENT
  Sex: Male

DRUGS (3)
  1. PROMACTA [Suspect]
     Indication: IMMUNE SYSTEM DISORDER
     Route: 048
     Dates: start: 20100722
  2. WARFARIN SODIUM [Concomitant]
  3. LORTAB [Concomitant]

REACTIONS (1)
  - DEATH [None]
